FAERS Safety Report 11259731 (Version 1)
Quarter: 2015Q3

REPORT INFORMATION
  Report Type: Spontaneous
  Country: US (occurrence: None)
  Receive Date: 20150709
  Receipt Date: 20150709
  Transmission Date: 20151125
  Serious: No
  Sender: FDA-Public Use
  Company Number: None

PATIENT
  Age: 71 Year
  Sex: Female
  Weight: 55.34 kg

DRUGS (2)
  1. FOSAMAX [Concomitant]
     Active Substance: ALENDRONATE SODIUM
  2. PREPARING TONIC [Suspect]
     Active Substance: SALICYLIC ACID
     Indication: CYSTITIS
     Route: 067
     Dates: start: 20150122, end: 20150630

REACTIONS (4)
  - Vasodilation procedure [None]
  - Breast pain [None]
  - Chest pain [None]
  - Vulvovaginal disorder [None]
